FAERS Safety Report 6595236-8 (Version None)
Quarter: 2010Q1

REPORT INFORMATION
  Report Type: 
  Country: None (occurrence: None)
  Receive Date: 20100212
  Receipt Date: 20100127
  Transmission Date: 20100710
  Serious: Yes (Other)
  Sender: FDA-Public Use
  Company Number: 005709

PATIENT
  Age: 57 Year
  Sex: Female

DRUGS (5)
  1. CIMZIA [Suspect]
     Indication: RHEUMATOID ARTHRITIS
     Dosage: SUBCUTANEOUS
     Route: 058
     Dates: start: 20100125, end: 20100128
  2. CELEBREX [Concomitant]
  3. ESTRADIOL [Concomitant]
  4. MULTIVITAMIN AND MINERAL SUPPLEMENT (MULTIVITAMIN AND MINERAL SUPPLEME [Concomitant]
  5. PROGESTERONE [Concomitant]

REACTIONS (2)
  - RASH GENERALISED [None]
  - THROAT TIGHTNESS [None]
